FAERS Safety Report 6696389-3 (Version None)
Quarter: 2010Q2

REPORT INFORMATION
  Report Type: 
  Country: None (occurrence: None)
  Receive Date: 20100426
  Receipt Date: 20100412
  Transmission Date: 20101027
  Serious: Yes (Hospitalization)
  Sender: FDA-Public Use
  Company Number: GB-ELI_LILLY_AND_COMPANY-GB201004003059

PATIENT
  Age: 36 Year
  Sex: Female

DRUGS (1)
  1. BYETTA [Suspect]
     Dosage: 5 UG, 2/D
     Dates: start: 20100401

REACTIONS (5)
  - ABDOMINAL DISCOMFORT [None]
  - BREATH ODOUR [None]
  - DIARRHOEA [None]
  - ERUCTATION [None]
  - VOMITING [None]
